FAERS Safety Report 6734755-8 (Version None)
Quarter: 2010Q2

REPORT INFORMATION
  Report Type: 
  Country: None (occurrence: None)
  Receive Date: 20100519
  Receipt Date: 20100519
  Transmission Date: 20101027
  Serious: Yes (Other)
  Sender: FDA-Public Use
  Company Number: None

PATIENT
  Sex: Female
  Weight: 74.8435 kg

DRUGS (1)
  1. NIASPAN [Suspect]
     Indication: BLOOD CHOLESTEROL INCREASED
     Dosage: 500 MG TID ORAL
     Route: 048
     Dates: start: 20100508, end: 20100513

REACTIONS (3)
  - BURNING SENSATION [None]
  - PRURITUS [None]
  - RASH GENERALISED [None]
